FAERS Safety Report 6071436-0 (Version None)
Quarter: 2009Q1

REPORT INFORMATION
  Report Type: 
  Country: None (occurrence: None)
  Receive Date: 20090204
  Receipt Date: 20090123
  Transmission Date: 20090719
  Serious: Yes (Hospitalization)
  Sender: FDA-Public Use
  Company Number: 040206

PATIENT
  Age: 55 Year
  Sex: Male
  Weight: 99.8 kg

DRUGS (7)
  1. WARFARIN SODIUM [Suspect]
     Indication: COAGULOPATHY
     Dosage: 2 MG,QD,ORAL; ORAL
     Route: 048
     Dates: start: 20081001, end: 20081101
  2. WARFARIN SODIUM [Suspect]
     Indication: COAGULOPATHY
     Dosage: 2 MG,QD,ORAL; ORAL
     Route: 048
     Dates: start: 20081101, end: 20081101
  3. WARFARIN SODIUM [Suspect]
     Indication: COAGULOPATHY
     Dosage: 2 MG,QD,ORAL; ORAL
     Route: 048
     Dates: start: 20080101
  4. COUMADIN [Suspect]
     Dosage: 5 MG/DAY
     Dates: start: 20081001
  5. UNSPECIFIED MEDICATION FOR HEART REGULATION [Concomitant]
  6. UNSPECIFIED DIURETIC [Concomitant]
  7. UNSPECIFIED BLOOD PRESSURE MEDICATION [Concomitant]

REACTIONS (7)
  - AGITATION [None]
  - BLOOD URINE PRESENT [None]
  - DRUG ADMINISTRATION ERROR [None]
  - HAEMATOMA [None]
  - HAEMORRHAGE [None]
  - OVERDOSE [None]
  - PAIN [None]
